FAERS Safety Report 24359913 (Version 1)
Quarter: 2024Q3

REPORT INFORMATION
  Report Type: Spontaneous
  Country: KR (occurrence: KR)
  Receive Date: 20240925
  Receipt Date: 20240925
  Transmission Date: 20241017
  Serious: Yes (Death, Other)
  Sender: AMGEN
  Company Number: KR-AMGEN-KORSP2024187244

PATIENT
  Age: 40 Year
  Sex: Male

DRUGS (12)
  1. BLINATUMOMAB [Suspect]
     Active Substance: BLINATUMOMAB
     Indication: B-cell type acute leukaemia
     Dosage: UNK
     Route: 065
  2. IMATINIB [Concomitant]
     Active Substance: IMATINIB
     Indication: B-cell type acute leukaemia
     Dosage: UNK
     Route: 065
  3. VINCRISTINE [Concomitant]
     Active Substance: VINCRISTINE
     Indication: B-cell type acute leukaemia
     Dosage: UNK
     Route: 065
  4. PREDNISOLONE [Concomitant]
     Active Substance: PREDNISOLONE
     Indication: B-cell type acute leukaemia
     Dosage: UNK
     Route: 065
  5. DAUNORUBICIN [Concomitant]
     Active Substance: DAUNORUBICIN
     Indication: B-cell type acute leukaemia
     Dosage: UNK
     Route: 065
  6. ASPARAGINASE [Concomitant]
     Active Substance: ASPARAGINASE
     Indication: B-cell type acute leukaemia
     Dosage: UNK
     Route: 065
  7. DASATINIB [Concomitant]
     Active Substance: DASATINIB
     Indication: B-cell type acute leukaemia
     Dosage: UNK
     Route: 065
  8. MITOXANTRONE [Concomitant]
     Active Substance: MITOXANTRONE HYDROCHLORIDE
     Indication: B-cell type acute leukaemia
     Dosage: UNK
     Route: 065
  9. ETOPOSIDE [Concomitant]
     Active Substance: ETOPOSIDE
     Indication: B-cell type acute leukaemia
     Dosage: UNK
     Route: 065
  10. CYTARABINE [Concomitant]
     Active Substance: CYTARABINE
     Indication: B-cell type acute leukaemia
     Dosage: UNK
     Route: 065
  11. PONATINIB [Concomitant]
     Active Substance: PONATINIB
     Indication: B-cell type acute leukaemia
     Dosage: UNK
     Route: 065
  12. CYCLOPHOSPHAMIDE\CYTARABINE\DEXAMETHASONE\DOXORUBICIN\METHOTREXATE\VIN [Concomitant]
     Active Substance: CYCLOPHOSPHAMIDE\CYTARABINE\DEXAMETHASONE\DOXORUBICIN\METHOTREXATE\VINCRISTINE
     Indication: B-cell type acute leukaemia
     Dosage: UNK
     Route: 065

REACTIONS (4)
  - Acute lymphocytic leukaemia recurrent [Unknown]
  - Thrombotic microangiopathy [Fatal]
  - COVID-19 [Unknown]
  - Treatment failure [Unknown]

NARRATIVE: CASE EVENT DATE: 20221204
